FAERS Safety Report 22647491 (Version 1)
Quarter: 2023Q2

REPORT INFORMATION
  Report Type: Spontaneous
  Country: US (occurrence: US)
  Receive Date: 20230628
  Receipt Date: 20230628
  Transmission Date: 20230722
  Serious: Yes (Other)
  Sender: FDA-Public Use
  Company Number: US-TAKEDA-2023TUS061193

PATIENT
  Age: 46 Year
  Sex: Female

DRUGS (1)
  1. ADDERALL XR [Suspect]
     Active Substance: AMPHETAMINE ASPARTATE\AMPHETAMINE SULFATE\DEXTROAMPHETAMINE SACCHARATE\DEXTROAMPHETAMINE SULFATE
     Indication: Attention deficit hyperactivity disorder
     Dosage: 25 MILLIGRAM, QD
     Route: 065

REACTIONS (15)
  - Craniocerebral injury [Unknown]
  - Oral mucosal blistering [Unknown]
  - Hypoaesthesia [Unknown]
  - Gait inability [Unknown]
  - Stomatitis [Unknown]
  - Limb discomfort [Unknown]
  - Fall [Unknown]
  - Speech disorder [Unknown]
  - Somnolence [Unknown]
  - Dyspnoea [Unknown]
  - Dry mouth [Unknown]
  - Drug ineffective [Unknown]
  - Therapeutic response unexpected [Unknown]
  - Product availability issue [Unknown]
  - Product contamination [Unknown]

NARRATIVE: CASE EVENT DATE: 20220101
